FAERS Safety Report 9727605 (Version 1)
Quarter: 2013Q4

REPORT INFORMATION
  Report Type: Spontaneous
  Country: CO (occurrence: CO)
  Receive Date: 20131203
  Receipt Date: 20131203
  Transmission Date: 20140711
  Serious: Yes (Other)
  Sender: FDA-Public Use
  Company Number: CO-BAXTER-2013BAX047477

PATIENT
  Age: 65 Year
  Sex: Female

DRUGS (7)
  1. DIANEAL PD-2 CON DEXTROSA AL 2,5%. [Suspect]
     Indication: PERITONEAL DIALYSIS
  2. LOSARTAN [Concomitant]
     Indication: HYPERTENSION
  3. IRON [Concomitant]
     Indication: PRODUCT USED FOR UNKNOWN INDICATION
  4. ATORVASTATIN [Concomitant]
     Indication: PRODUCT USED FOR UNKNOWN INDICATION
  5. SUCRALFATE [Concomitant]
     Indication: PRODUCT USED FOR UNKNOWN INDICATION
  6. METHOCLOPRAMIDE [Concomitant]
     Indication: PRODUCT USED FOR UNKNOWN INDICATION
  7. ERYTHROPOIETIN [Concomitant]
     Indication: PRODUCT USED FOR UNKNOWN INDICATION

REACTIONS (3)
  - Peritonitis bacterial [Recovering/Resolving]
  - Biliary colic [Unknown]
  - Product container issue [Unknown]
